FAERS Safety Report 9314501 (Version 2)
Quarter: 2013Q2

REPORT INFORMATION
  Report Type: Spontaneous
  Country: US (occurrence: US)
  Receive Date: 20130529
  Receipt Date: 20130617
  Transmission Date: 20140414
  Serious: Yes (Other)
  Sender: FDA-Public Use
  Company Number: US-PFIZER INC-2013162908

PATIENT
  Age: 66 Year
  Sex: Male
  Weight: 113 kg

DRUGS (5)
  1. CHANTIX [Suspect]
     Indication: SMOKING CESSATION THERAPY
     Dosage: UNK
     Dates: start: 2009, end: 2009
  2. JANUVIA [Concomitant]
     Indication: DIABETES MELLITUS
     Dosage: 100 MG, 1X/DAY
  3. METFORMIN [Concomitant]
     Indication: DIABETES MELLITUS
     Dosage: 1000 MG, 2X/DAY
  4. GLYBURIDE [Concomitant]
     Indication: DIABETES MELLITUS
     Dosage: 5 MG, 2X/DAY
  5. CARVEDILOL [Concomitant]
     Indication: HYPERTENSION
     Dosage: 25 MG, 2X/DAY

REACTIONS (1)
  - Cerebrovascular accident [Unknown]
